FAERS Safety Report 18862853 (Version 7)
Quarter: 2021Q3

REPORT INFORMATION
  Report Type: Report from Study
  Country: CA (occurrence: CA)
  Receive Date: 20210208
  Receipt Date: 20210929
  Transmission Date: 20211014
  Serious: Yes (Hospitalization, Other)
  Sender: FDA-Public Use
  Company Number: CA-TAKEDA-CA202030462

PATIENT
  Age: 12 Year
  Sex: Male

DRUGS (3)
  1. HIZENTRA [Concomitant]
     Active Substance: HUMAN IMMUNOGLOBULIN G
     Indication: PRODUCT USED FOR UNKNOWN INDICATION
     Dosage: 10 MILLILITER, UNKNOWN
     Route: 065
     Dates: start: 20170717, end: 20180904
  2. CUVITRU [Suspect]
     Active Substance: HUMAN IMMUNOGLOBULIN G
     Indication: PRIMARY IMMUNODEFICIENCY SYNDROME
     Dosage: 5 GRAM, 1X/WEEK
     Route: 058
     Dates: start: 20180911
  3. CUVITRU [Suspect]
     Active Substance: HUMAN IMMUNOGLOBULIN G
     Dosage: 6 GRAM, 1/WEEK
     Route: 058
     Dates: start: 20180911

REACTIONS (25)
  - Infection [Unknown]
  - Needle issue [Not Recovered/Not Resolved]
  - Arnold-Chiari malformation [Not Recovered/Not Resolved]
  - Aspiration [Unknown]
  - Decubitus ulcer [Recovering/Resolving]
  - Scoliosis [Not Recovered/Not Resolved]
  - Feeding disorder [Not Recovered/Not Resolved]
  - Fatigue [Unknown]
  - Oropharyngeal pain [Recovering/Resolving]
  - Impaired driving ability [Not Recovered/Not Resolved]
  - Infusion site bruising [Recovered/Resolved]
  - Platelet count decreased [Recovering/Resolving]
  - Device infusion issue [Recovered/Resolved]
  - Congenital thrombocyte disorder [Unknown]
  - Pyrexia [Unknown]
  - Diaphragmatic paralysis [Unknown]
  - Incorrect product administration duration [Not Recovered/Not Resolved]
  - Palatal disorder [Unknown]
  - Abdominal discomfort [Not Recovered/Not Resolved]
  - Injection site haemorrhage [Recovered/Resolved]
  - Lip blister [Recovering/Resolving]
  - Wrong technique in device usage process [Recovering/Resolving]
  - Post procedural infection [Not Recovered/Not Resolved]
  - Abnormal clotting factor [Unknown]
  - Insomnia [Unknown]

NARRATIVE: CASE EVENT DATE: 20200908
